FAERS Safety Report 24386468 (Version 1)
Quarter: 2024Q4

REPORT INFORMATION
  Report Type: Spontaneous
  Country: CA (occurrence: CA)
  Receive Date: 20241002
  Receipt Date: 20241002
  Transmission Date: 20250114
  Serious: Yes (Other)
  Sender: ACCORD
  Company Number: None

PATIENT
  Age: 76 Year
  Sex: Female
  Weight: 62 kg

DRUGS (1)
  1. DAPTOMYCIN [Suspect]
     Active Substance: DAPTOMYCIN
     Indication: Staphylococcal mediastinitis
     Dosage: POWDER FOR SOLUTION INTRAVENOUS, 1 EVERY 48 HOURS
     Route: 042

REACTIONS (5)
  - Eosinophil count increased [Recovering/Resolving]
  - Hyperthermia [Recovering/Resolving]
  - Lung infiltration [Recovering/Resolving]
  - Respiratory failure [Recovering/Resolving]
  - White blood cell count increased [Recovering/Resolving]
